FAERS Safety Report 17454453 (Version 1)
Quarter: 2020Q1

REPORT INFORMATION
  Report Type: Spontaneous
  Country: FR (occurrence: FR)
  Receive Date: 20200225
  Receipt Date: 20200225
  Transmission Date: 20200409
  Serious: Yes (Other)
  Sender: FDA-Public Use
  Company Number: FR-TEVA-2020-FR-1191479

PATIENT
  Age: 64 Year
  Sex: Female
  Weight: 53 kg

DRUGS (2)
  1. CYCLOPHOSPHAMIDE. [Suspect]
     Active Substance: CYCLOPHOSPHAMIDE
     Indication: BREAST CANCER
     Dosage: 950 MG
     Route: 041
     Dates: start: 20200103
  2. DOCETAXEL. [Suspect]
     Active Substance: DOCETAXEL
     Indication: BREAST CANCER
     Dosage: 120 MG
     Route: 041
     Dates: start: 20200103

REACTIONS (1)
  - Gastrointestinal toxicity [Not Recovered/Not Resolved]

NARRATIVE: CASE EVENT DATE: 202001
